FAERS Safety Report 14688420 (Version 2)
Quarter: 2021Q3

REPORT INFORMATION
  Report Type: Spontaneous
  Country: US (occurrence: US)
  Receive Date: 20180328
  Receipt Date: 20210920
  Transmission Date: 20211014
  Serious: Yes (Hospitalization, Other)
  Sender: FDA-Public Use
  Company Number: US-TEVA-2018-US-874050

PATIENT
  Age: 0 Year
  Sex: Female
  Weight: 2.9 kg

DRUGS (7)
  1. ZANTAC [Concomitant]
     Active Substance: RANITIDINE HYDROCHLORIDE
     Dosage: 300 MILLIGRAM DAILY;
     Route: 064
  2. ACETAMINOPHEN W/OXYCODONE [Suspect]
     Active Substance: ACETAMINOPHEN\OXYCODONE HYDROCHLORIDE
     Indication: PAIN
     Dosage: 325/5MG, ONCE 6 HOURS
     Route: 064
     Dates: start: 20161119, end: 20170804
  3. BUPRENORPHINE HCL HIKMA [Suspect]
     Active Substance: BUPRENORPHINE HYDROCHLORIDE
     Indication: PAIN
     Dosage: 16 MILLIGRAM DAILY;
     Route: 064
     Dates: start: 201706, end: 201711
  4. SUBUTEX [Suspect]
     Active Substance: BUPRENORPHINE HYDROCHLORIDE
     Indication: PAIN
     Dosage: 16 MILLIGRAM DAILY;
     Route: 064
     Dates: start: 201610
  5. BUPRENORPHINE ACTAVIS [Suspect]
     Active Substance: BUPRENORPHINE
     Indication: PAIN
     Dosage: 16 MILLIGRAM DAILY;
     Route: 064
     Dates: start: 20170607, end: 201711
  6. LISINOPRIL. [Concomitant]
     Active Substance: LISINOPRIL
  7. SUBOXONE [Suspect]
     Active Substance: BUPRENORPHINE HYDROCHLORIDE\NALOXONE HYDROCHLORIDE
     Indication: PAIN
     Route: 064
     Dates: start: 201107

REACTIONS (9)
  - Foetal hypokinesia [Recovered/Resolved]
  - Poor feeding infant [Unknown]
  - Tremor [Unknown]
  - Developmental delay [Not Recovered/Not Resolved]
  - Foetal exposure during pregnancy [Unknown]
  - Crying [Unknown]
  - Drug withdrawal syndrome neonatal [Unknown]
  - Foetal biophysical profile score abnormal [Recovered/Resolved]
  - Apnoea [Recovered/Resolved]

NARRATIVE: CASE EVENT DATE: 20170226
